FAERS Safety Report 5725442-3 (Version None)
Quarter: 2008Q2

REPORT INFORMATION
  Report Type: 
  Country: None (occurrence: None)
  Receive Date: 20080501
  Receipt Date: 20080422
  Transmission Date: 20081010
  Serious: Yes (Hospitalization)
  Sender: FDA-Public Use
  Company Number: GB-TEVA-170489ISR

PATIENT
  Age: 82 Year
  Sex: Female

DRUGS (2)
  1. FLUCONAZOLE [Suspect]
  2. ATORVASTATIN [Suspect]

REACTIONS (2)
  - JAUNDICE [None]
  - PANCREATITIS [None]
